FAERS Safety Report 5325362-2 (Version None)
Quarter: 2007Q2

REPORT INFORMATION
  Report Type: 
  Country: None (occurrence: None)
  Receive Date: 20070509
  Receipt Date: 20070423
  Transmission Date: 20071010
  Serious: Yes (Hospitalization)
  Sender: FDA-Public Use
  Company Number: 2007RR-06989

PATIENT
  Age: 74 Year
  Sex: Male

DRUGS (7)
  1. ENALAPRIL MALEATE [Suspect]
     Indication: HYPERTENSION
  2. AMLODIPINE MALEATE (AMLODIPINE) [Concomitant]
  3. DIGOXIN [Concomitant]
  4. ASPIRIN [Concomitant]
  5. RANITIDINE [Concomitant]
  6. LORMETAZEPAM [Concomitant]
  7. AMLODIPINE MALEATE (AMLODIPINE) [Concomitant]

REACTIONS (3)
  - ATRIAL FIBRILLATION [None]
  - HYPONATRAEMIA [None]
  - INAPPROPRIATE ANTIDIURETIC HORMONE SECRETION [None]
